FAERS Safety Report 4441176-X (Version None)
Quarter: 2004Q3

REPORT INFORMATION
  Report Type: 
  Country: None (occurrence: None)
  Receive Date: 20040728
  Receipt Date: 20040402
  Transmission Date: 20050211
  Serious: No
  Sender: FDA-Public Use
  Company Number: USA040463949

PATIENT
  Age: 10 Year
  Sex: Male

DRUGS (1)
  1. STRATTERA [Suspect]
     Indication: ATTENTION DEFICIT/HYPERACTIVITY DISORDER
     Dosage: 70 MG DAY
     Dates: start: 20030301

REACTIONS (9)
  - ABDOMINAL PAIN UPPER [None]
  - APHTHOUS STOMATITIS [None]
  - DIARRHOEA [None]
  - GASTROOESOPHAGEAL REFLUX DISEASE [None]
  - MOUTH HAEMORRHAGE [None]
  - PAIN IN JAW [None]
  - PYREXIA [None]
  - TESTICULAR PAIN [None]
  - VOMITING [None]
